FAERS Safety Report 10749414 (Version 2)
Quarter: 2015Q1

REPORT INFORMATION
  Report Type: Spontaneous
  Country: US (occurrence: US)
  Receive Date: 20150129
  Receipt Date: 20150216
  Transmission Date: 20150721
  Serious: Yes (Hospitalization)
  Sender: FDA-Public Use
  Company Number: US-MALLINCKRODT-T201500237

PATIENT
  Age: 17 Year
  Sex: Male

DRUGS (4)
  1. GABLOFEN [Suspect]
     Active Substance: BACLOFEN
     Dosage: 500 MCG/DAY
     Route: 037
  2. GABLOFEN [Suspect]
     Active Substance: BACLOFEN
     Indication: MUSCLE SPASTICITY
     Dosage: 590.3 MCG/DAY
     Route: 037
     Dates: start: 20141208
  3. TRANXENE T-TAB [Concomitant]
     Active Substance: CLORAZEPATE DIPOTASSIUM
     Indication: DRUG WITHDRAWAL SYNDROME
     Dosage: 3.75 MG
  4. BACLOFEN. [Concomitant]
     Active Substance: BACLOFEN
     Indication: DRUG WITHDRAWAL SYNDROME
     Dosage: 20 MG,
     Route: 048
     Dates: start: 20150102

REACTIONS (9)
  - Clonus [Recovered/Resolved]
  - Tremor [Recovered/Resolved]
  - Discomfort [Recovered/Resolved]
  - Agitation [Recovered/Resolved]
  - Hyperhidrosis [Recovered/Resolved]
  - Tachycardia [Recovered/Resolved]
  - Drug withdrawal syndrome [Recovered/Resolved]
  - Hypertension [Recovered/Resolved]
  - Retching [Recovered/Resolved]

NARRATIVE: CASE EVENT DATE: 20150102
